FAERS Safety Report 7997211-5 (Version None)
Quarter: 2011Q4

REPORT INFORMATION
  Report Type: 
  Country: None (occurrence: None)
  Receive Date: 20111221
  Receipt Date: 20111209
  Transmission Date: 20120403
  Serious: Yes (Death, Hospitalization)
  Sender: FDA-Public Use
  Company Number: FR-SANOFI-AVENTIS-2011SA074981

PATIENT
  Age: 75 Year
  Sex: Male
  Weight: 82 kg

DRUGS (13)
  1. RAMIPRIL [Concomitant]
     Route: 048
     Dates: start: 20030101
  2. FUROSEMIDE [Concomitant]
     Route: 048
     Dates: start: 20010101
  3. NEBIVOLOL HCL [Concomitant]
     Route: 048
     Dates: start: 20100101
  4. SPIRIVA [Concomitant]
  5. MULTAQ [Suspect]
     Route: 048
     Dates: start: 20101117, end: 20101228
  6. AMIODARONE HCL [Concomitant]
     Route: 048
     Dates: start: 20061201, end: 20101116
  7. BECLOMETHASONE DIPROPIONATE [Concomitant]
  8. ZOLPIDEM [Concomitant]
     Route: 048
  9. ESCITALOPRAM OXALATE [Concomitant]
     Route: 048
     Dates: start: 20101117
  10. AMINOPHYLLINE [Concomitant]
     Indication: RENAL FAILURE
     Route: 048
     Dates: start: 20010101
  11. PREVISCAN [Concomitant]
     Route: 048
     Dates: start: 20060101
  12. ALLOPURINOL [Concomitant]
     Route: 048
  13. LORAZEPAM [Concomitant]
     Route: 048

REACTIONS (2)
  - PNEUMONIA PNEUMOCOCCAL [None]
  - SEPTIC SHOCK [None]
